FAERS Safety Report 6768514-7 (Version None)
Quarter: 2010Q2

REPORT INFORMATION
  Report Type: 
  Country: None (occurrence: None)
  Receive Date: 20100614
  Receipt Date: 20100603
  Transmission Date: 20101027
  Serious: Yes (Other)
  Sender: FDA-Public Use
  Company Number: HU-PFIZER INC-2010052091

PATIENT
  Age: 43 Year
  Sex: Female
  Weight: 80 kg

DRUGS (2)
  1. ZELDOX [Suspect]
     Indication: BIPOLAR DISORDER
     Dosage: 80 MG, 2X/DAY
     Route: 048
     Dates: start: 20100301, end: 20100401
  2. ZELDOX [Suspect]
     Dosage: 60 MG Q MORNING AND 80 MG Q HS
     Route: 048
     Dates: start: 20100401, end: 20100501

REACTIONS (4)
  - GAMMA-GLUTAMYLTRANSFERASE INCREASED [None]
  - HYPERSOMNIA [None]
  - HYPOAESTHESIA [None]
  - MUSCLE RIGIDITY [None]
